FAERS Safety Report 9246828 (Version 1)
Quarter: 2013Q2

REPORT INFORMATION
  Report Type: Spontaneous
  Country: US (occurrence: US)
  Receive Date: 20130422
  Receipt Date: 20130422
  Transmission Date: 20140414
  Serious: No
  Sender: FDA-Public Use
  Company Number: US-B.I. PHARMACEUTICALS,INC./RIDGEFIELD-2013-BI-10036BP

PATIENT
  Age: 79 Year
  Sex: Female
  Weight: 68 kg

DRUGS (7)
  1. SPIRIVA [Suspect]
     Indication: CHRONIC OBSTRUCTIVE PULMONARY DISEASE
     Dosage: 18 MCG
     Route: 055
  2. ADVAIR [Concomitant]
     Indication: ASTHMA
  3. FLONASE [Concomitant]
     Indication: NASAL CONGESTION
  4. ALLEGRA [Concomitant]
     Indication: SEASONAL ALLERGY
  5. THEOPHYLLINE [Concomitant]
     Indication: ASTHMA
  6. OXYGEN [Concomitant]
     Indication: DYSPNOEA
     Route: 045
     Dates: start: 2009
  7. PREDNISONE [Concomitant]
     Indication: COUGH
     Dosage: 5 MG
     Route: 048

REACTIONS (5)
  - Dyspnoea [Not Recovered/Not Resolved]
  - Intentional overdose [Recovered/Resolved]
  - Product quality issue [Recovered/Resolved]
  - Product quality issue [Recovered/Resolved]
  - Product quality issue [Recovered/Resolved]
